FAERS Safety Report 8436264-7 (Version None)
Quarter: 2012Q2

REPORT INFORMATION
  Report Type: 
  Country: None (occurrence: None)
  Receive Date: 20120614
  Receipt Date: 20120610
  Transmission Date: 20120825
  Serious: No
  Sender: FDA-Public Use
  Company Number: US-PFIZER INC-2012139460

PATIENT
  Sex: Male
  Weight: 88 kg

DRUGS (1)
  1. ADVIL [Suspect]
     Indication: MUSCULOSKELETAL PAIN
     Dosage: 400 MG (TWO CAPLETS OF 200MG), 2X/DAY
     Route: 048
     Dates: start: 20120605, end: 20120609

REACTIONS (4)
  - ABDOMINAL PAIN UPPER [None]
  - FLATULENCE [None]
  - GASTRIC DISORDER [None]
  - EPIGASTRIC DISCOMFORT [None]
